FAERS Safety Report 8863095 (Version 3)
Quarter: 2013Q1

REPORT INFORMATION
  Report Type: Report from Study
  Country: US (occurrence: US)
  Receive Date: 20121026
  Receipt Date: 20130111
  Transmission Date: 20140127
  Serious: Yes (Hospitalization)
  Sender: FDA-Public Use
  Company Number: US-ABBOTT-12P-163-0994678-00

PATIENT
  Age: 65 Year
  Sex: Female
  Weight: 87.17 kg

DRUGS (20)
  1. HUMIRA [Suspect]
     Indication: RHEUMATOID ARTHRITIS
     Route: 058
     Dates: start: 20120523, end: 20120829
  2. METHOTREXATE [Suspect]
     Indication: RHEUMATOID ARTHRITIS
     Route: 048
     Dates: start: 20120523, end: 20120905
  3. SAVELLA [Concomitant]
     Indication: FIBROMYALGIA
     Route: 048
     Dates: start: 201105
  4. ASPIRIN LOW [Concomitant]
     Indication: PROPHYLAXIS
     Route: 048
     Dates: start: 2007
  5. ASPIRIN LOW [Concomitant]
     Indication: CARDIAC ABLATION
  6. LEVOTHYROXINE [Concomitant]
     Indication: HYPOTHYROIDISM
     Route: 048
     Dates: start: 2002
  7. NEURONTIN [Concomitant]
     Indication: OPTIC NEUROPATHY
     Route: 048
     Dates: start: 1992
  8. NEURONTIN [Concomitant]
     Indication: IIIRD NERVE INJURY
  9. ZOCOR [Concomitant]
     Indication: HYPERLIPIDAEMIA
     Route: 048
     Dates: start: 201104
  10. ORACEA [Concomitant]
     Indication: ROSACEA
     Route: 048
     Dates: start: 2007
  11. FOLIC ACID [Concomitant]
     Indication: PROPHYLAXIS
     Route: 048
     Dates: start: 20110906, end: 20120522
  12. FOLIC ACID [Concomitant]
     Indication: TOXICITY TO VARIOUS AGENTS
  13. VOLTAREN EMULGEL [Concomitant]
     Indication: ARTHRALGIA
     Route: 062
     Dates: start: 20111207
  14. INH [Concomitant]
     Indication: ANTIBIOTIC PROPHYLAXIS
     Route: 048
     Dates: start: 20120301
  15. LORZONE [Concomitant]
     Indication: BACK PAIN
     Route: 048
     Dates: start: 20120426
  16. LORZONE [Concomitant]
     Indication: FIBROMYALGIA
  17. MULTIVITAMIN [Concomitant]
     Indication: MEDICAL DIET
     Route: 048
     Dates: start: 2007
  18. OMEGA 3 [Concomitant]
     Indication: HYPERLIPIDAEMIA
     Route: 048
     Dates: start: 2010
  19. CALTRATE [Concomitant]
     Indication: MEDICAL DIET
     Route: 048
     Dates: start: 2010
  20. AMOXICILLIN [Concomitant]
     Indication: UPPER RESPIRATORY TRACT INFECTION
     Route: 048
     Dates: start: 20120912, end: 20120925

REACTIONS (1)
  - Colitis [Recovered/Resolved]
